FAERS Safety Report 22175606 (Version 2)
Quarter: 2023Q2

REPORT INFORMATION
  Report Type: Report from Study
  Country: US (occurrence: US)
  Receive Date: 20230405
  Receipt Date: 20230427
  Transmission Date: 20230722
  Serious: Yes (Other)
  Sender: FDA-Public Use
  Company Number: US-ABBVIE-4335740

PATIENT
  Age: 38 Year
  Sex: Female

DRUGS (1)
  1. RINVOQ [Suspect]
     Active Substance: UPADACITINIB
     Indication: Product used for unknown indication
     Route: 048
     Dates: start: 20221124

REACTIONS (5)
  - Tooth extraction [Not Recovered/Not Resolved]
  - Weight decreased [Recovering/Resolving]
  - Tooth infection [Not Recovered/Not Resolved]
  - Diarrhoea [Recovered/Resolved]
  - Tooth extraction [Recovered/Resolved]

NARRATIVE: CASE EVENT DATE: 20230301
